FAERS Safety Report 18453471 (Version 2)
Quarter: 2020Q4

REPORT INFORMATION
  Report Type: Report from Study
  Country: KR (occurrence: KR)
  Receive Date: 20201030
  Receipt Date: 20201030
  Transmission Date: 20210114
  Serious: Yes (Death, Life-Threatening, Hospitalization, Other)
  Sender: FDA-Public Use
  Company Number: KR-JNJFOC-A-CH2019-196342

PATIENT
  Age: 62 Year
  Sex: Male

DRUGS (127)
  1. ZYPREXA [Suspect]
     Active Substance: OLANZAPINE
     Indication: RESPIRATORY DEPRESSION
     Dosage: 2 DF, QD
     Route: 065
     Dates: start: 20170504
  2. NEXIUM [Concomitant]
     Active Substance: ESOMEPRAZOLE MAGNESIUM
     Dosage: 40 MG, QD
     Route: 048
     Dates: start: 20170123, end: 20170408
  3. PENIRAMIN [Concomitant]
     Dosage: 4 MG, QD
     Route: 048
     Dates: start: 20140310, end: 20170408
  4. CELLCEPT [Concomitant]
     Active Substance: MYCOPHENOLATE MOFETIL\MYCOPHENOLATE MOFETIL HYDROCHLORIDE
     Dosage: 2 DF, QD
     Route: 048
     Dates: start: 20170409, end: 20170409
  5. NITROLINGUAL [Concomitant]
     Active Substance: NITROGLYCERIN
     Dosage: 5 UG, PER MIN
     Route: 042
     Dates: start: 20170409, end: 20170410
  6. KETAMINE HCL [Concomitant]
     Active Substance: KETAMINE HYDROCHLORIDE
     Dosage: 2 UG/KG, PER MIN
     Route: 042
     Dates: start: 20170406, end: 20170410
  7. CYMEVENE [Concomitant]
     Active Substance: GANCICLOVIR
     Dosage: 300 MG, QD
     Route: 042
     Dates: start: 20170409, end: 20170409
  8. MAXIPIME [Concomitant]
     Active Substance: CEFEPIME HYDROCHLORIDE
     Dosage: 4 G, QD
     Route: 042
     Dates: start: 20170409, end: 20170415
  9. SPORANOX [Concomitant]
     Active Substance: ITRACONAZOLE
     Dosage: 30 ML, QD
     Route: 048
     Dates: start: 20170410, end: 20170411
  10. SEPTRIN [Concomitant]
     Active Substance: SULFAMETHOXAZOLE\TRIMETHOPRIM
     Dosage: 2 DF, QD
     Route: 048
     Dates: start: 20170410, end: 20170410
  11. SEPTRIN [Concomitant]
     Active Substance: SULFAMETHOXAZOLE\TRIMETHOPRIM
     Dosage: 2 DF, QD
     Route: 048
     Dates: start: 20170418, end: 20170418
  12. SEPTRIN [Concomitant]
     Active Substance: SULFAMETHOXAZOLE\TRIMETHOPRIM
     Dosage: 2 DF, QD
     Route: 048
     Dates: start: 20170420, end: 20170420
  13. SEPTRIN [Concomitant]
     Active Substance: SULFAMETHOXAZOLE\TRIMETHOPRIM
     Dosage: 3 DF, QD
     Route: 048
     Dates: start: 20170429, end: 20170430
  14. CALCIUM GLUCONATE. [Concomitant]
     Active Substance: CALCIUM GLUCONATE
     Dosage: 20 ML, QD
     Route: 042
     Dates: start: 20170420, end: 20170420
  15. MAGNESIUM [Concomitant]
     Active Substance: MAGNESIUM
     Dosage: 2 G, QD
     Route: 042
     Dates: start: 20170525, end: 20170525
  16. PHOSTEN [Concomitant]
     Dosage: 20 ML, QD
     Route: 042
     Dates: start: 20170602, end: 20170603
  17. LASIX [Concomitant]
     Active Substance: FUROSEMIDE
     Dosage: 10 MG/HR, QD
     Route: 042
     Dates: start: 20170614, end: 20170617
  18. NEXIUM [Concomitant]
     Active Substance: ESOMEPRAZOLE MAGNESIUM
     Dosage: 40 MG, QD
     Route: 042
     Dates: start: 20170602, end: 20170617
  19. SIMULECT [Concomitant]
     Active Substance: BASILIXIMAB
     Dosage: 20 UNK
     Route: 042
     Dates: start: 20170413, end: 20170413
  20. SEPTRIN [Concomitant]
     Active Substance: SULFAMETHOXAZOLE\TRIMETHOPRIM
     Dosage: 3 DF, QD
     Route: 048
     Dates: start: 20170506, end: 20170507
  21. NALOXONE HCL [Concomitant]
     Active Substance: NALOXONE HYDROCHLORIDE
     Dosage: 0.2 MG, QD
     Route: 042
     Dates: start: 20170411, end: 20170411
  22. PRECEDEX [Concomitant]
     Active Substance: DEXMEDETOMIDINE HYDROCHLORIDE
     Dosage: 0.2 UG/KG
     Route: 042
     Dates: start: 20170413, end: 20170415
  23. LANTUS [Concomitant]
     Active Substance: INSULIN GLARGINE
     Dosage: 25 IU, QD
     Route: 058
     Dates: start: 20170419, end: 20170602
  24. TACROBELL [Concomitant]
     Active Substance: TACROLIMUS
     Dosage: 2 DF, QD
     Route: 048
     Dates: start: 20170515, end: 20170518
  25. TACROBELL [Concomitant]
     Active Substance: TACROLIMUS
     Dosage: 2.5 DF, QD
     Route: 048
     Dates: start: 20170519, end: 20170528
  26. MAGNESIUM [Concomitant]
     Active Substance: MAGNESIUM
     Dosage: 2 G, QD
     Route: 042
     Dates: start: 20170613, end: 20170614
  27. SEROQUEL [Suspect]
     Active Substance: QUETIAPINE FUMARATE
     Indication: PRODUCT USED FOR UNKNOWN INDICATION
     Route: 065
  28. ALDACTONE [Concomitant]
     Active Substance: SPIRONOLACTONE
     Dosage: 50 MG, QD
     Route: 048
     Dates: start: 20160824, end: 20170408
  29. LASIX [Concomitant]
     Active Substance: FUROSEMIDE
     Dosage: 80 MG, QD
     Route: 048
     Dates: start: 20161026, end: 20170408
  30. LASIX [Concomitant]
     Active Substance: FUROSEMIDE
     Dosage: 20 MG, QD
     Route: 042
     Dates: start: 20170515, end: 20170515
  31. NEXIUM [Concomitant]
     Active Substance: ESOMEPRAZOLE MAGNESIUM
     Dosage: 40 MG, QD
     Route: 042
     Dates: start: 20170514, end: 20170515
  32. GASMOTIN [Concomitant]
     Active Substance: MOSAPRIDE CITRATE
     Dosage: 15 MG, QD
     Route: 048
     Dates: start: 20140224, end: 20170408
  33. DUPHALAC EASY [Concomitant]
     Active Substance: LACTULOSE
     Dosage: 30 ML, QD
     Route: 048
     Dates: start: 20161128, end: 20170319
  34. TRAJENTA [Concomitant]
     Active Substance: LINAGLIPTIN
     Dosage: 5 MG, QD
     Route: 048
     Dates: start: 20161212, end: 20170408
  35. LEVEMIR [Concomitant]
     Active Substance: INSULIN DETEMIR
     Dosage: 2 IU, QD
     Route: 058
     Dates: start: 20161212, end: 20170319
  36. SOLONDO [Concomitant]
     Active Substance: PREDNISOLONE
     Dosage: 2.5 MG, QD
     Route: 048
     Dates: start: 20141113, end: 20170408
  37. KALIMATE [Concomitant]
     Active Substance: CALCIUM POLYSTYRENE SULFONATE
     Dosage: 6 SACHET
     Route: 048
     Dates: start: 20170415, end: 20170520
  38. HUMULIN R [Concomitant]
     Active Substance: INSULIN HUMAN
     Dosage: 4 IU, QD
     Route: 042
     Dates: start: 20170410, end: 20170420
  39. HUMULIN R [Concomitant]
     Active Substance: INSULIN HUMAN
     Dosage: 9 IU, QD
     Route: 058
     Dates: start: 20170610, end: 20170614
  40. CALCIUM GLUCONATE. [Concomitant]
     Active Substance: CALCIUM GLUCONATE
     Dosage: 20 ML, QD
     Route: 042
     Dates: start: 20170424, end: 20170428
  41. CALCIUM GLUCONATE. [Concomitant]
     Active Substance: CALCIUM GLUCONATE
     Dosage: 20 ML, QD
     Route: 042
     Dates: start: 20170531, end: 20170531
  42. CALCIUM GLUCONATE. [Concomitant]
     Active Substance: CALCIUM GLUCONATE
     Dosage: 20 ML, QD
     Route: 042
     Dates: start: 20170602, end: 20170617
  43. DILID [Concomitant]
     Dosage: 0.1 MG/HR, QD
     Route: 042
     Dates: start: 20170410, end: 20170415
  44. MIDAZOLAM. [Concomitant]
     Active Substance: MIDAZOLAM
     Dosage: 5 MG, QD
     Route: 042
     Dates: start: 20170417, end: 20170417
  45. ALBUMIN [Concomitant]
     Active Substance: ALBUMIN HUMAN
     Dosage: 100 ML, QD
     Route: 042
     Dates: start: 20170509, end: 20170509
  46. ALBUMIN [Concomitant]
     Active Substance: ALBUMIN HUMAN
     Dosage: 100 ML, QD
     Route: 042
     Dates: start: 20170520, end: 20170520
  47. MAGNESIUM [Concomitant]
     Active Substance: MAGNESIUM
     Dosage: 2 G, QD
     Route: 042
     Dates: start: 20170507, end: 20170510
  48. OLIMEL [Concomitant]
     Active Substance: AMINO ACIDS\DEXTROSE\SOYBEAN OIL
     Dosage: 1000 ML, QD
     Route: 042
     Dates: start: 20170510, end: 20170513
  49. PHOSTEN [Concomitant]
     Dosage: 20 ML, QD
     Route: 042
     Dates: start: 20170517, end: 20170518
  50. PHOSTEN [Concomitant]
     Dosage: 20 ML, QD
     Route: 042
     Dates: start: 20170606, end: 20170607
  51. PAHTENSION [Concomitant]
     Active Substance: SILDENAFIL CITRATE
     Dosage: 60 MG, QD
     Route: 048
     Dates: start: 20150402, end: 20170408
  52. TRAJENTA [Concomitant]
     Active Substance: LINAGLIPTIN
     Dosage: 1 DF, QD
     Route: 048
     Dates: start: 20170418, end: 20170622
  53. DUROC [Concomitant]
     Dosage: 200 MG, QD
     Route: 048
     Dates: start: 20160919, end: 20170409
  54. DISOLRIN [Concomitant]
     Dosage: 20 MG, QD
     Route: 042
     Dates: start: 20170515, end: 20170528
  55. DOBUTAMINE HCL [Concomitant]
     Active Substance: DOBUTAMINE HYDROCHLORIDE
     Dosage: 5 UG/KG, QD
     Route: 042
     Dates: start: 20170409, end: 20170413
  56. FENTANYL. [Concomitant]
     Active Substance: FENTANYL
     Dosage: 50 MCG, QD
     Route: 042
     Dates: start: 20170409, end: 20170409
  57. SEPTRIN [Concomitant]
     Active Substance: SULFAMETHOXAZOLE\TRIMETHOPRIM
     Dosage: 4 DF, QD
     Route: 048
     Dates: start: 20170422, end: 20170423
  58. SEPTRIN [Concomitant]
     Active Substance: SULFAMETHOXAZOLE\TRIMETHOPRIM
     Dosage: 1 DF, QD
     Route: 048
     Dates: start: 20170508
  59. TACROBELL [Concomitant]
     Active Substance: TACROLIMUS
     Dosage: 2 DF, QD
     Route: 048
     Dates: start: 20170529, end: 20170605
  60. ALBUMIN [Concomitant]
     Active Substance: ALBUMIN HUMAN
     Dosage: 100 ML, QD
     Route: 042
     Dates: start: 20170503, end: 20170503
  61. ALBUMIN [Concomitant]
     Active Substance: ALBUMIN HUMAN
     Dosage: 100 ML, QD
     Route: 042
     Dates: start: 20170614, end: 20170614
  62. SODIUM BICARBONATE. [Concomitant]
     Active Substance: SODIUM BICARBONATE
     Dosage: 182 ML, QD
     Route: 042
     Dates: start: 20170427, end: 20170427
  63. MAGNESIUM [Concomitant]
     Active Substance: MAGNESIUM
     Dosage: 2 G, QD
     Route: 042
     Dates: start: 20170428, end: 20170428
  64. MAGNESIUM [Concomitant]
     Active Substance: MAGNESIUM
     Dosage: 2 G, QD
     Route: 042
     Dates: start: 20170512, end: 20170514
  65. MAGNESIUM [Concomitant]
     Active Substance: MAGNESIUM
     Dosage: 2 G, QD
     Route: 042
     Dates: start: 20170522, end: 20170522
  66. OPSUMIT [Suspect]
     Active Substance: MACITENTAN
     Indication: PULMONARY ARTERIAL HYPERTENSION
     Dosage: 10 MG, QD
     Route: 048
     Dates: start: 20170125, end: 20170408
  67. ZYTRAM [Suspect]
     Active Substance: TRAMADOL HYDROCHLORIDE
     Indication: RESPIRATORY DEPRESSION
     Route: 065
  68. DICHLOZID [Concomitant]
     Dosage: 25 MG, QD
     Route: 048
     Dates: start: 20150402, end: 20170408
  69. LASIX [Concomitant]
     Active Substance: FUROSEMIDE
     Dosage: 20 MG, QD
     Route: 042
     Dates: start: 20170512, end: 20170512
  70. LASIX [Concomitant]
     Active Substance: FUROSEMIDE
     Dosage: 20 MG, QD
     Route: 042
     Dates: start: 20170521, end: 20170603
  71. TAMBUTOL [Concomitant]
     Dosage: 800 MG, QD
     Route: 048
     Dates: start: 20150820, end: 20170319
  72. CELLCEPT [Concomitant]
     Active Substance: MYCOPHENOLATE MOFETIL\MYCOPHENOLATE MOFETIL HYDROCHLORIDE
     Dosage: 1000 MG
     Route: 048
     Dates: start: 20170410, end: 20170410
  73. NORPIN [Concomitant]
     Dosage: 0.05 UG/KG, PER MIN
     Route: 042
     Dates: start: 20170409, end: 20170415
  74. DISOLRIN [Concomitant]
     Dosage: 15 MG, QD
     Route: 042
     Dates: start: 20170529, end: 20170611
  75. SPORANOX [Concomitant]
     Active Substance: ITRACONAZOLE
     Dosage: 30 UNK
     Route: 048
     Dates: start: 20170415, end: 20170623
  76. CALCIUM GLUCONATE. [Concomitant]
     Active Substance: CALCIUM GLUCONATE
     Dosage: 20 ML, QD
     Route: 042
     Dates: start: 20170525, end: 20170525
  77. TAMIPOOL [Concomitant]
     Active Substance: VITAMINS
     Dosage: 1 DF, QD
     Route: 042
     Dates: start: 20170510, end: 20170513
  78. VALCYTE [Concomitant]
     Active Substance: VALGANCICLOVIR HYDROCHLORIDE
     Dosage: 2 DF, QD
     Route: 048
     Dates: start: 20170615, end: 20170615
  79. LASIX [Concomitant]
     Active Substance: FUROSEMIDE
     Dosage: 20 MG, QD
     Route: 042
     Dates: start: 20170507, end: 20170509
  80. SYNTHYROXINE [Concomitant]
     Active Substance: LEVOTHYROXINE SODIUM
     Dosage: 25 MCG, QD
     Route: 048
     Dates: start: 20161212, end: 20170319
  81. SYNTHYROXINE [Concomitant]
     Active Substance: LEVOTHYROXINE SODIUM
     Dosage: 50 MCG, QD
     Route: 048
     Dates: start: 20170320, end: 20170612
  82. NORPIN [Concomitant]
     Dosage: 0.05 UG/KG, PER MIN
     Route: 042
     Dates: start: 20170417, end: 20170417
  83. CYMEVENE [Concomitant]
     Active Substance: GANCICLOVIR
     Dosage: 600 MG, QD
     Route: 042
     Dates: start: 20170519, end: 20170601
  84. DISOLRIN [Concomitant]
     Dosage: 30 MG, QD
     Route: 042
     Dates: start: 20170409, end: 20170430
  85. DISOLRIN [Concomitant]
     Dosage: 25 MG, QD
     Route: 042
     Dates: start: 20170501, end: 20170514
  86. SPORANOX [Concomitant]
     Active Substance: ITRACONAZOLE
     Dosage: 10 ML, QD
     Route: 048
     Dates: start: 20170412, end: 20170414
  87. HUMULIN R [Concomitant]
     Active Substance: INSULIN HUMAN
     Dosage: 10 IU
     Route: 058
     Dates: start: 20170424, end: 20170428
  88. VITAMIN K1 [Concomitant]
     Active Substance: PHYTONADIONE
     Dosage: 10 MG, QD
     Route: 042
     Dates: start: 20170410, end: 20170410
  89. TACROBELL [Concomitant]
     Active Substance: TACROLIMUS
     Dosage: 2.5 MG, QD
     Route: 048
     Dates: start: 20170509, end: 20170514
  90. TACROBELL [Concomitant]
     Active Substance: TACROLIMUS
     Dosage: 1.5 MG, QD
     Route: 048
     Dates: start: 20170607, end: 20170621
  91. ALBUMIN [Concomitant]
     Active Substance: ALBUMIN HUMAN
     Dosage: 100 ML, QD
     Route: 042
     Dates: start: 20170525, end: 20170525
  92. MAGNESIUM [Concomitant]
     Active Substance: MAGNESIUM
     Dosage: 2 G, QD
     Route: 042
     Dates: start: 20170517, end: 20170518
  93. FURTMAN [Concomitant]
     Dosage: 0.1 DF, QD
     Route: 042
     Dates: start: 20170510, end: 20170513
  94. PHOSTEN [Concomitant]
     Dosage: 20 ML, QD
     Route: 042
     Dates: start: 20170611, end: 20170611
  95. GASTER [Concomitant]
     Active Substance: FAMOTIDINE
     Dosage: 40 MG, QD
     Route: 048
     Dates: start: 20150521, end: 20170408
  96. LASIX [Concomitant]
     Active Substance: FUROSEMIDE
     Dosage: 5 MG/HR, QD
     Route: 042
     Dates: start: 20170614, end: 20170617
  97. NEXIUM [Concomitant]
     Active Substance: ESOMEPRAZOLE MAGNESIUM
     Dosage: 40 MG, QD
     Route: 042
     Dates: start: 20170602, end: 20170617
  98. ZITHROMAX [Concomitant]
     Active Substance: AZITHROMYCIN DIHYDRATE
     Dosage: 500 MG
     Route: 048
     Dates: start: 20160404, end: 20170319
  99. CODEIN PHOSPHAS [Concomitant]
     Dosage: 20 MG, QD
     Route: 048
     Dates: start: 20080807, end: 20170408
  100. CAVID [Concomitant]
     Dosage: 200 MG, QD
     Route: 048
     Dates: start: 20160919, end: 20170409
  101. PHAZYME [Concomitant]
     Active Substance: DIMETHICONE 410
     Dosage: 3 DF, QD
     Route: 048
     Dates: start: 20170320, end: 20170408
  102. NOVORAPID [Concomitant]
     Active Substance: INSULIN ASPART
     Dosage: 5 IU, QD
     Route: 058
     Dates: start: 20170419, end: 20170602
  103. KALIMATE [Concomitant]
     Active Substance: CALCIUM POLYSTYRENE SULFONATE
     Dosage: 10 G, QD
     Route: 048
     Dates: start: 20170409, end: 20170410
  104. SIMULECT [Concomitant]
     Active Substance: BASILIXIMAB
     Dosage: 20 MG, QD
     Route: 042
     Dates: start: 20170406, end: 20170409
  105. PROGRAF [Concomitant]
     Active Substance: TACROLIMUS
     Dosage: 0.02 MG/HR, QD
     Route: 042
     Dates: start: 20170409, end: 20170410
  106. FENTANYL. [Concomitant]
     Active Substance: FENTANYL
     Dosage: 50 MCG, QD
     Route: 042
     Dates: start: 20170417, end: 20170417
  107. HUMULIN R [Concomitant]
     Active Substance: INSULIN HUMAN
     Dosage: 10 IU
     Route: 058
     Dates: start: 20170506, end: 20170507
  108. CALCIUM GLUCONATE. [Concomitant]
     Active Substance: CALCIUM GLUCONATE
     Dosage: 2 G, QD
     Route: 042
     Dates: start: 20170410, end: 20170410
  109. VASOPRESSIN. [Concomitant]
     Active Substance: VASOPRESSIN
     Dosage: 0.03 IU/L, QD
     Route: 042
     Dates: start: 20170410, end: 20170411
  110. TACROBELL [Concomitant]
     Active Substance: TACROLIMUS
     Dosage: 2 DF
     Route: 048
     Dates: start: 20170424, end: 20170428
  111. TACROBELL [Concomitant]
     Active Substance: TACROLIMUS
     Dosage: 3 DF
     Route: 048
     Dates: start: 20170429, end: 20170508
  112. ALBUMIN [Concomitant]
     Active Substance: ALBUMIN HUMAN
     Dosage: 250 ML, QD
     Route: 042
     Dates: start: 20170424, end: 20170424
  113. ALBUMIN [Concomitant]
     Active Substance: ALBUMIN HUMAN
     Dosage: 100 ML, QD
     Route: 042
     Dates: start: 20170531, end: 20170531
  114. MAGNESIUM [Concomitant]
     Active Substance: MAGNESIUM
     Dosage: 2 G, QD
     Route: 042
     Dates: start: 20170503, end: 20170503
  115. MAGNESIUM [Concomitant]
     Active Substance: MAGNESIUM
     Dosage: 2 G, QD
     Route: 042
     Dates: start: 20170520, end: 20170520
  116. MAGNESIUM [Concomitant]
     Active Substance: MAGNESIUM
     Dosage: 2 G, QD
     Route: 042
     Dates: start: 20170602, end: 20170607
  117. NEXIUM [Concomitant]
     Active Substance: ESOMEPRAZOLE MAGNESIUM
     Dosage: 40 MG, QD
     Route: 042
     Dates: start: 20170409, end: 20170502
  118. DIABEX [Concomitant]
     Active Substance: METFORMIN HYDROCHLORIDE
     Dosage: 1000 MG, QD
     Route: 048
     Dates: start: 20150205, end: 20170408
  119. NOVORAPID [Concomitant]
     Active Substance: INSULIN ASPART
     Dosage: 5 IU, QD
     Route: 058
     Dates: start: 20170320, end: 20170408
  120. CELLCEPT [Concomitant]
     Active Substance: MYCOPHENOLATE MOFETIL\MYCOPHENOLATE MOFETIL HYDROCHLORIDE
     Dosage: 1000 UNK
     Route: 048
     Dates: start: 20170412, end: 20170602
  121. REMIVA [Concomitant]
     Dosage: 0.05 UG/KG, PER MIN
     Route: 042
     Dates: start: 20170409, end: 20170410
  122. CYMEVENE [Concomitant]
     Active Substance: GANCICLOVIR
     Dosage: 300 MG, QD
     Route: 042
     Dates: start: 20170417, end: 20170423
  123. SEPTRIN [Concomitant]
     Active Substance: SULFAMETHOXAZOLE\TRIMETHOPRIM
     Dosage: 0.5 DF, QD
     Route: 048
     Dates: start: 20170413, end: 20170413
  124. SEPTRIN [Concomitant]
     Active Substance: SULFAMETHOXAZOLE\TRIMETHOPRIM
     Dosage: 2 DF, QD
     Route: 048
     Dates: start: 20170415, end: 20170415
  125. ATIVAN [Concomitant]
     Active Substance: LORAZEPAM
     Dosage: 4 MG, QD
     Route: 042
     Dates: start: 20170410, end: 20170410
  126. ALBUMIN [Concomitant]
     Active Substance: ALBUMIN HUMAN
     Dosage: 250 ML, QD
     Route: 042
     Dates: start: 20170611, end: 20170611
  127. MAGNESIUM [Concomitant]
     Active Substance: MAGNESIUM
     Dosage: 2 G, QD
     Route: 042
     Dates: start: 20170529, end: 20170531

REACTIONS (11)
  - Atrial flutter [Not Recovered/Not Resolved]
  - Escherichia test positive [Unknown]
  - Cardiac arrest [Recovering/Resolving]
  - Delirium [Unknown]
  - Cytomegalovirus infection [Not Recovered/Not Resolved]
  - Hypotension [Recovered/Resolved]
  - Respiratory depression [Recovered/Resolved]
  - Condition aggravated [Fatal]
  - Supraventricular tachycardia [Not Recovered/Not Resolved]
  - Pneumonia [Fatal]
  - Pain [Unknown]

NARRATIVE: CASE EVENT DATE: 20170409
